FAERS Safety Report 12828699 (Version 9)
Quarter: 2018Q4

REPORT INFORMATION
  Report Type: Spontaneous
  Country: US (occurrence: US)
  Receive Date: 20161007
  Receipt Date: 20181114
  Transmission Date: 20190204
  Serious: Yes (Hospitalization, Other)
  Sender: FDA-Public Use
  Company Number: US-SA-2015SA220295

PATIENT
  Age: 51 Year
  Sex: Female

DRUGS (10)
  1. ERGOCALCIFEROL. [Concomitant]
     Active Substance: ERGOCALCIFEROL
     Dosage: UNK
  2. AUBAGIO [Suspect]
     Active Substance: TERIFLUNOMIDE
     Indication: MULTIPLE SCLEROSIS
     Dosage: 14 MG, QD
     Route: 048
     Dates: start: 20131220
  3. AUBAGIO [Suspect]
     Active Substance: TERIFLUNOMIDE
     Dosage: 1 DF,QD
     Route: 048
     Dates: start: 20131224
  4. AUBAGIO [Suspect]
     Active Substance: TERIFLUNOMIDE
     Dosage: 14 UNK
     Route: 048
     Dates: start: 20140726
  5. AUBAGIO [Suspect]
     Active Substance: TERIFLUNOMIDE
     Dosage: 14 MG,QD
     Route: 048
     Dates: start: 20170315, end: 201708
  6. NORCO [Concomitant]
     Active Substance: ACETAMINOPHEN\HYDROCODONE BITARTRATE
     Dosage: UNK
  7. AUBAGIO [Suspect]
     Active Substance: TERIFLUNOMIDE
     Dosage: 14 MG,QD
     Route: 048
     Dates: start: 20140417
  8. AUBAGIO [Suspect]
     Active Substance: TERIFLUNOMIDE
     Dosage: 1 UNK
     Route: 048
     Dates: start: 20151215
  9. AMPYRA [Concomitant]
     Active Substance: DALFAMPRIDINE
     Dosage: UNK
  10. AUBAGIO [Suspect]
     Active Substance: TERIFLUNOMIDE
     Dosage: 14 MG,QD
     Route: 048
     Dates: start: 2017

REACTIONS (13)
  - Musculoskeletal stiffness [Unknown]
  - Nausea [Not Recovered/Not Resolved]
  - Movement disorder [Unknown]
  - Nasopharyngitis [Not Recovered/Not Resolved]
  - Malaise [Unknown]
  - Hepatic enzyme increased [Unknown]
  - Bronchitis [Not Recovered/Not Resolved]
  - Joint stiffness [Unknown]
  - Fall [Unknown]
  - Hepatomegaly [Unknown]
  - Infection [Unknown]
  - Product dose omission [Unknown]
  - Multiple sclerosis relapse [Unknown]

NARRATIVE: CASE EVENT DATE: 2016
